FAERS Safety Report 8540726-1 (Version None)
Quarter: 2012Q3

REPORT INFORMATION
  Report Type: 
  Country: None (occurrence: None)
  Receive Date: 20120726
  Receipt Date: 20120412
  Transmission Date: 20120928
  Serious: No
  Sender: FDA-Public Use
  Company Number: US-MYLANLABS-2012S1007855

PATIENT
  Age: 80 Year
  Sex: Female

DRUGS (2)
  1. ONDANSETRON HYDROCHLORIDE [Suspect]
     Indication: VOMITING
     Route: 048
     Dates: start: 20120109, end: 20120101
  2. ONDANSETRON HYDROCHLORIDE [Suspect]
     Indication: NAUSEA
     Route: 048
     Dates: start: 20120109, end: 20120101

REACTIONS (1)
  - THERAPEUTIC RESPONSE UNEXPECTED [None]
